FAERS Safety Report 16991828 (Version 3)
Quarter: 2021Q1

REPORT INFORMATION
  Report Type: Report from Study
  Country: None (occurrence: SE)
  Receive Date: 20191104
  Receipt Date: 20210119
  Transmission Date: 20210419
  Serious: Yes (Hospitalization)
  Sender: FDA-Public Use
  Company Number: SE-ABBVIE-19K-150-2985659-00

PATIENT
  Age: 55 Year
  Sex: Male
  Weight: 80 kg

DRUGS (5)
  1. MADOPARK QUICK [Concomitant]
     Active Substance: BENSERAZIDE HYDROCHLORIDE\LEVODOPA
     Indication: PRODUCT USED FOR UNKNOWN INDICATION
  2. DUODOPA [Suspect]
     Active Substance: CARBIDOPA\LEVODOPA
     Indication: PARKINSON^S DISEASE
     Route: 050
     Dates: start: 20190924, end: 2019
  3. DUODOPA [Suspect]
     Active Substance: CARBIDOPA\LEVODOPA
     Dosage: CONTINUOUS DOSE INCREASED FROM 5 ML/H TO 5.2 ML/H REMAINS AT 16H
     Route: 050
     Dates: start: 201910
  4. DUODOPA [Suspect]
     Active Substance: CARBIDOPA\LEVODOPA
     Dosage: MD INCREASED WITH 1ML, ED INCREASED WITH 0.5 ML. THERAPY DURATION: REMAINS AT 16H
     Route: 050
     Dates: start: 20210118
  5. SIFROL [Concomitant]
     Active Substance: PRAMIPEXOLE
     Indication: PRODUCT USED FOR UNKNOWN INDICATION
     Dates: end: 20191021

REACTIONS (12)
  - Delusion [Not Recovered/Not Resolved]
  - Muscle spasms [Not Recovered/Not Resolved]
  - Hallucination [Recovered/Resolved]
  - Therapeutic product effect incomplete [Not Recovered/Not Resolved]
  - Unevaluable event [Not Recovered/Not Resolved]
  - Impaired work ability [Not Recovered/Not Resolved]
  - Poor quality sleep [Not Recovered/Not Resolved]
  - Panic attack [Not Recovered/Not Resolved]
  - Vertigo [Unknown]
  - On and off phenomenon [Not Recovered/Not Resolved]
  - Hallucination [Unknown]
  - Musculoskeletal stiffness [Not Recovered/Not Resolved]

NARRATIVE: CASE EVENT DATE: 2019
